FAERS Safety Report 8083637-0 (Version None)
Quarter: 2012Q1

REPORT INFORMATION
  Report Type: 
  Country: None (occurrence: None)
  Receive Date: 20120127
  Receipt Date: 20110111
  Transmission Date: 20120608
  Serious: No
  Sender: FDA-Public Use
  Company Number: US-ABBOTT-11P-163-0696612-00

PATIENT
  Age: 60 Year
  Sex: Female

DRUGS (9)
  1. APRISO [Concomitant]
     Indication: CROHN'S DISEASE
  2. UNKNOWN SUPPOSITORY [Concomitant]
     Indication: INFLAMMATION
  3. SIMVASTATIN [Concomitant]
     Indication: BLOOD CHOLESTEROL
  4. ALLEGRA-D 12 HOUR [Concomitant]
     Indication: HYPERSENSITIVITY
  5. PROGESTERONE [Concomitant]
     Indication: HORMONE REPLACEMENT THERAPY
  6. ESTRADIOL [Concomitant]
     Indication: HORMONE REPLACEMENT THERAPY
  7. NASONEX [Concomitant]
     Indication: HYPERSENSITIVITY
  8. UNKNOWN SUPPOSITORY [Concomitant]
     Indication: CONSTIPATION
  9. HUMIRA [Suspect]
     Indication: CROHN'S DISEASE
     Dates: start: 20101001

REACTIONS (3)
  - CROHN'S DISEASE [None]
  - ANXIETY [None]
  - FATIGUE [None]
